FAERS Safety Report 14336070 (Version 4)
Quarter: 2018Q4

REPORT INFORMATION
  Report Type: Report from Study
  Country: NO (occurrence: NO)
  Receive Date: 20171229
  Receipt Date: 20181114
  Transmission Date: 20190204
  Serious: Yes (Hospitalization)
  Sender: FDA-Public Use
  Company Number: NO-TAKEDA-2017TUS027006

PATIENT
  Sex: Male

DRUGS (7)
  1. VEDOLIZUMAB [Suspect]
     Active Substance: VEDOLIZUMAB
     Indication: PRODUCT USED FOR UNKNOWN INDICATION
     Dosage: UNK
     Route: 042
     Dates: start: 20170623
  2. ENTOCORT [Concomitant]
     Active Substance: BUDESONIDE
     Dosage: 9 MG, QD
  3. MAGNESIUM [Concomitant]
     Active Substance: MAGNESIUM
     Dosage: 300 MG, BID
  4. ENTOCORT [Concomitant]
     Active Substance: BUDESONIDE
     Dosage: 6 MG, QD
  5. ADALIMUMAB [Concomitant]
     Active Substance: ADALIMUMAB
     Dosage: UNK
     Dates: start: 2017
  6. MAGNESIUM [Concomitant]
     Active Substance: MAGNESIUM
     Dosage: 300 MG, TID
  7. CALCIUM SANDOZ                     /00060701/ [Concomitant]
     Active Substance: CALCIUM GLUCONATE
     Dosage: 1000 MG, TID

REACTIONS (2)
  - Anal abscess [Not Recovered/Not Resolved]
  - Anal fistula [Not Recovered/Not Resolved]

NARRATIVE: CASE EVENT DATE: 20170808
